FAERS Safety Report 5960146-3 (Version None)
Quarter: 2008Q4

REPORT INFORMATION
  Report Type: 
  Country: None (occurrence: None)
  Receive Date: 20081120
  Receipt Date: 20081105
  Transmission Date: 20090506
  Serious: Yes (Disabling)
  Sender: FDA-Public Use
  Company Number: AU-ASTRAZENECA-2008AP07975

PATIENT
  Age: 52 Year
  Sex: Female

DRUGS (4)
  1. ARIMIDEX [Suspect]
     Indication: BREAST CANCER
     Route: 048
     Dates: start: 20050601, end: 20050101
  2. ARIMIDEX [Suspect]
     Route: 048
     Dates: start: 20080901
  3. VOLTAREN [Concomitant]
     Route: 065
  4. ZOLPIDEM [Concomitant]
     Route: 065

REACTIONS (4)
  - ARTHRALGIA [None]
  - DRY EYE [None]
  - MEMORY IMPAIRMENT [None]
  - NAUSEA [None]
